FAERS Safety Report 10051311 (Version 1)
Quarter: 2014Q2

REPORT INFORMATION
  Report Type: Spontaneous
  Country: US (occurrence: US)
  Receive Date: 20140401
  Receipt Date: 20140401
  Transmission Date: 20141212
  Serious: No
  Sender: FDA-Public Use
  Company Number: US-PFIZER INC-2014088606

PATIENT
  Sex: Male

DRUGS (1)
  1. PROCARDIA [Suspect]
     Dosage: UNK

REACTIONS (5)
  - Peripheral swelling [Unknown]
  - Burning sensation [Unknown]
  - Pain [Unknown]
  - Nerve compression [Unknown]
  - Oedema peripheral [Unknown]
